FAERS Safety Report 18457112 (Version 1)
Quarter: 2020Q4

REPORT INFORMATION
  Report Type: Spontaneous
  Country: US (occurrence: US)
  Receive Date: 20201103
  Receipt Date: 20201103
  Transmission Date: 20210114
  Serious: Yes (Other)
  Sender: FDA-Public Use
  Company Number: US-GLAXOSMITHKLINE-US2020215557

PATIENT
  Sex: Female

DRUGS (1)
  1. ADVAIR DISKUS [Suspect]
     Active Substance: FLUTICASONE PROPIONATE\SALMETEROL XINAFOATE
     Indication: ASTHMA
     Dosage: UNK
     Dates: start: 2004, end: 2013

REACTIONS (4)
  - Food allergy [Unknown]
  - Systemic lupus erythematosus [Unknown]
  - Multiple allergies [Unknown]
  - Reaction to azo-dyes [Unknown]

NARRATIVE: CASE EVENT DATE: 2018
